FAERS Safety Report 5212041-5 (Version None)
Quarter: 2007Q1

REPORT INFORMATION
  Report Type: 
  Country: None (occurrence: None)
  Receive Date: 20070117
  Receipt Date: 20070117
  Transmission Date: 20070707
  Serious: Yes (Other)
  Sender: FDA-Public Use
  Company Number: None

PATIENT
  Sex: Female

DRUGS (1)
  1. SODIUM PHOSPHATE DIABASIC/SODIUM PHOSPHATE [Suspect]
     Indication: COLONOSCOPY
     Dosage: PO
     Route: 048

REACTIONS (3)
  - GLOMERULAR FILTRATION RATE DECREASED [None]
  - NEPHROPATHY [None]
  - RENAL FAILURE ACUTE [None]
